FAERS Safety Report 5606263-9 (Version None)
Quarter: 2008Q1

REPORT INFORMATION
  Report Type: 
  Country: None (occurrence: None)
  Receive Date: 20080129
  Receipt Date: 20070409
  Transmission Date: 20080703
  Serious: No
  Sender: FDA-Public Use
  Company Number: A0646309A

PATIENT
  Age: 44 Year
  Sex: Male

DRUGS (4)
  1. BUPROPION HYDROCHLORIDE [Suspect]
     Indication: DEPRESSION
     Dosage: 300MG PER DAY
     Route: 048
  2. WELLBUTRIN XL [Suspect]
     Indication: DEPRESSION
     Dosage: 150MG THREE TIMES PER DAY
     Route: 048
  3. VISTARIL [Concomitant]
  4. NAPROSYN [Concomitant]

REACTIONS (1)
  - TENSION [None]
